FAERS Safety Report 10411115 (Version 1)
Quarter: 2014Q3

REPORT INFORMATION
  Report Type: Spontaneous
  Country: US (occurrence: US)
  Receive Date: 20140826
  Receipt Date: 20140826
  Transmission Date: 20150326
  Serious: No
  Sender: FDA-Public Use
  Company Number: US-ELI_LILLY_AND_COMPANY-US201408003056

PATIENT
  Age: 56 Year
  Sex: Female

DRUGS (3)
  1. HUMALOG [Suspect]
     Active Substance: INSULIN LISPRO
     Indication: PRODUCT USED FOR UNKNOWN INDICATION
     Dosage: UNK
     Route: 065
     Dates: start: 1989
  2. RAMIPRIL. [Concomitant]
     Active Substance: RAMIPRIL
     Dosage: 10 MG, QD
  3. HUMALOG [Suspect]
     Active Substance: INSULIN LISPRO
     Dosage: UNK
     Route: 065

REACTIONS (2)
  - Underdose [Unknown]
  - Blood glucose increased [Unknown]
